FAERS Safety Report 11400940 (Version 4)
Quarter: 2015Q3

REPORT INFORMATION
  Report Type: Report from Study
  Country: JP (occurrence: JP)
  Receive Date: 20150820
  Receipt Date: 20150916
  Transmission Date: 20151125
  Serious: Yes (Hospitalization)
  Sender: FDA-Public Use
  Company Number: JP-JNJFOC-20150810193

PATIENT
  Age: 70 Year
  Sex: Male
  Weight: 74.7 kg

DRUGS (20)
  1. IBRUTINIB [Suspect]
     Active Substance: IBRUTINIB
     Indication: MANTLE CELL LYMPHOMA
     Route: 048
     Dates: start: 20150804, end: 20150812
  2. RINDERON V [Concomitant]
     Active Substance: BETAMETHASONE VALERATE
     Indication: OTITIS MEDIA
     Dates: start: 20150313
  3. LOXONIN [Concomitant]
     Active Substance: LOXOPROFEN SODIUM
     Indication: CELLULITIS
     Route: 061
     Dates: start: 20150803
  4. LOXONIN [Concomitant]
     Active Substance: LOXOPROFEN SODIUM
     Indication: CELLULITIS
     Route: 061
     Dates: start: 20150712, end: 20150713
  5. LEVOFLOXACIN. [Concomitant]
     Active Substance: LEVOFLOXACIN
     Indication: CELLULITIS
     Route: 048
     Dates: start: 20150810
  6. IBRUTINIB [Suspect]
     Active Substance: IBRUTINIB
     Indication: MANTLE CELL LYMPHOMA
     Route: 048
     Dates: start: 20150826
  7. IBRUTINIB [Suspect]
     Active Substance: IBRUTINIB
     Indication: MANTLE CELL LYMPHOMA
     Route: 048
     Dates: start: 20150707, end: 20150803
  8. CALONAL [Concomitant]
     Active Substance: ACETAMINOPHEN
     Indication: CELLULITIS
     Route: 048
     Dates: start: 20150804, end: 20150805
  9. CEFCAPENE PIVOXIL [Concomitant]
     Active Substance: CEFCAPENE PIVOXIL
     Indication: CELLULITIS
     Route: 048
     Dates: start: 20150803, end: 20150804
  10. CEFCAPENE PIVOXIL [Concomitant]
     Active Substance: CEFCAPENE PIVOXIL
     Indication: CELLULITIS
     Route: 048
     Dates: start: 20150717
  11. IBRUTINIB [Suspect]
     Active Substance: IBRUTINIB
     Indication: MANTLE CELL LYMPHOMA
     Route: 048
     Dates: start: 20150813, end: 20150825
  12. HYALEIN [Concomitant]
     Active Substance: HYALURONATE SODIUM
     Indication: DRY EYE
     Route: 047
     Dates: start: 20110728
  13. LOXONIN [Concomitant]
     Active Substance: LOXOPROFEN SODIUM
     Indication: ARTHRALGIA
     Route: 061
     Dates: start: 20150712, end: 20150713
  14. TARIVID [Concomitant]
     Active Substance: OFLOXACIN
     Indication: OTITIS MEDIA
     Dates: start: 20150313
  15. LOXONIN [Concomitant]
     Active Substance: LOXOPROFEN SODIUM
     Indication: CELLULITIS
     Route: 061
     Dates: start: 20150727, end: 20150801
  16. ROCEPHIN [Concomitant]
     Active Substance: CEFTRIAXONE SODIUM
     Indication: CELLULITIS
     Route: 042
     Dates: start: 20150804, end: 20150810
  17. FEBURIC [Concomitant]
     Active Substance: FEBUXOSTAT
     Indication: HYPERURICAEMIA
     Route: 048
     Dates: start: 20150709
  18. LOXONIN [Concomitant]
     Active Substance: LOXOPROFEN SODIUM
     Indication: ARTHRALGIA
     Route: 061
     Dates: start: 20150727, end: 20150801
  19. LOXONIN [Concomitant]
     Active Substance: LOXOPROFEN SODIUM
     Indication: ARTHRALGIA
     Route: 061
     Dates: start: 20150803
  20. LOXOPROFEN [Concomitant]
     Active Substance: LOXOPROFEN
     Indication: CELLULITIS
     Route: 048
     Dates: start: 20150805

REACTIONS (1)
  - Muscle haemorrhage [Recovered/Resolved]

NARRATIVE: CASE EVENT DATE: 20150812
